FAERS Safety Report 5502584-9 (Version None)
Quarter: 2007Q4

REPORT INFORMATION
  Report Type: 
  Country: None (occurrence: None)
  Receive Date: 20071031
  Receipt Date: 20071022
  Transmission Date: 20080405
  Serious: Yes (Other)
  Sender: FDA-Public Use
  Company Number: PHEH2007US13145

PATIENT
  Age: 73 Year
  Sex: Female

DRUGS (1)
  1. DIOVAN [Suspect]
     Indication: HYPERTENSION
     Dates: start: 20020101

REACTIONS (2)
  - JOINT INJURY [None]
  - SPINAL OSTEOARTHRITIS [None]
